FAERS Safety Report 7550938-1 (Version None)
Quarter: 2011Q2

REPORT INFORMATION
  Report Type: 
  Country: None (occurrence: None)
  Receive Date: 20110609
  Receipt Date: 20110601
  Transmission Date: 20111010
  Serious: Yes (Other)
  Sender: FDA-Public Use
  Company Number: TPA2011A02770

PATIENT
  Age: 61 Year
  Sex: Female
  Weight: 82.5547 kg

DRUGS (6)
  1. METFORMIN HCL [Concomitant]
  2. LISINOPRIL AND HYDROCHLOROTHIAZIDE [Concomitant]
  3. ACTOPLUS MET [Suspect]
     Indication: TYPE 2 DIABETES MELLITUS
     Dosage: 15/500 MG TABLETS DAILY, ORAL
     Route: 048
  4. METOPROLOL - SLOW RELEASE (METOPROLOL TARTRATE) [Concomitant]
  5. LATANOPROST [Suspect]
     Indication: GLAUCOMA
     Dosage: 1 DROP IN EACH EYE NIGHTLY, OPHTHALMIC
     Route: 047
     Dates: start: 20110101, end: 20110101
  6. NORVASC [Concomitant]

REACTIONS (2)
  - INTRAOCULAR PRESSURE INCREASED [None]
  - WEIGHT INCREASED [None]
